FAERS Safety Report 13835350 (Version 1)
Quarter: 2017Q3

REPORT INFORMATION
  Report Type: Spontaneous
  Country: US (occurrence: US)
  Receive Date: 20170804
  Receipt Date: 20170804
  Transmission Date: 20171127
  Serious: Yes (Other)
  Sender: FDA-Public Use
  Company Number: None

PATIENT
  Age: 58 Year
  Sex: Female
  Weight: 67.5 kg

DRUGS (5)
  1. CIPROFLOXACN 500MG TAB TEV PLIVA HRVATSKA D.O.O. ZAGREB CROATIA FOR TEVA PHARM [Suspect]
     Active Substance: CIPROFLOXACIN
     Indication: POST PROCEDURAL INFECTION
     Dosage: ?          QUANTITY:20 TABLET(S);?
     Route: 048
     Dates: start: 20170728, end: 20170730
  2. LISINIPRIL [Concomitant]
     Active Substance: LISINOPRIL
  3. MINOXIDIL. [Concomitant]
     Active Substance: MINOXIDIL
  4. MULTIVITAMIN [Concomitant]
     Active Substance: VITAMINS
  5. TUMERIC [Concomitant]
     Active Substance: HERBALS\TURMERIC

REACTIONS (1)
  - Tendonitis [None]

NARRATIVE: CASE EVENT DATE: 20170730
